FAERS Safety Report 20977955 (Version 1)
Quarter: 2022Q2

REPORT INFORMATION
  Report Type: Spontaneous
  Country: DE (occurrence: DE)
  Receive Date: 20220618
  Receipt Date: 20220618
  Transmission Date: 20220720
  Serious: Yes (Other)
  Sender: FDA-Public Use
  Company Number: None

PATIENT
  Age: 75 Year
  Sex: Male

DRUGS (16)
  1. ARIPIPRAZOLE [Suspect]
     Active Substance: ARIPIPRAZOLE
     Dosage: UNIT DOSE: 5 MG, FREQUENCY : 1 DAYS
     Route: 048
     Dates: start: 20220112, end: 20220118
  2. ARIPIPRAZOLE [Suspect]
     Active Substance: ARIPIPRAZOLE
     Route: 048
     Dates: start: 20220311, end: 20220403
  3. ARIPIPRAZOLE [Suspect]
     Active Substance: ARIPIPRAZOLE
     Route: 048
     Dates: start: 20220119, end: 20220202
  4. ARIPIPRAZOLE [Suspect]
     Active Substance: ARIPIPRAZOLE
     Route: 048
     Dates: start: 20220105, end: 20220111
  5. ARIPIPRAZOLE [Suspect]
     Active Substance: ARIPIPRAZOLE
     Route: 048
     Dates: start: 20220203, end: 20220310
  6. TIANEPTINE SODIUM [Suspect]
     Active Substance: TIANEPTINE SODIUM
     Dosage: UNIT DOSE: 37.5 MG, FREQUENCY : 1 DAYS
     Route: 048
     Dates: start: 20220304
  7. TIANEPTINE SODIUM [Suspect]
     Active Substance: TIANEPTINE SODIUM
     Route: 048
     Dates: start: 20220221, end: 20220301
  8. TIANEPTINE SODIUM [Suspect]
     Active Substance: TIANEPTINE SODIUM
     Route: 048
     Dates: start: 20220302, end: 20220303
  9. BRINTELLIX [Suspect]
     Active Substance: VORTIOXETINE HYDROBROMIDE
     Dosage: 5-10MG/DAY
     Route: 048
     Dates: start: 20210701, end: 20210801
  10. BRINTELLIX [Suspect]
     Active Substance: VORTIOXETINE HYDROBROMIDE
     Route: 048
     Dates: start: 20220311
  11. BRINTELLIX [Suspect]
     Active Substance: VORTIOXETINE HYDROBROMIDE
     Route: 048
     Dates: start: 20210802, end: 20220310
  12. AMLODIPINE BESYLATE [Concomitant]
     Active Substance: AMLODIPINE BESYLATE
     Dosage: UNIT DOSE: 10  MG, FREQUENCY : 1 DAYS
     Route: 048
     Dates: start: 20220101
  13. ZOPICLONE [Concomitant]
     Active Substance: ZOPICLONE
     Dosage: FOR MONTHS,UNIT DOSE: 7.5 MG, FREQUENCY : 1 DAYS
     Route: 048
  14. SIMVASTATIN [Concomitant]
     Active Substance: SIMVASTATIN
     Dosage: FOR YEARS,UNIT DOSE: 20 MG, FREQUENCY : 1 DAYS
     Route: 048
  15. TAMSULOSIN [Concomitant]
     Active Substance: TAMSULOSIN
     Dosage: FOR YEARS
     Route: 048
  16. CANDESARTAN [Concomitant]
     Active Substance: CANDESARTAN
     Dosage: 1-2MG
     Route: 048
     Dates: start: 20220101

REACTIONS (1)
  - Dyskinesia [Recovered/Resolved]

NARRATIVE: CASE EVENT DATE: 20220325
